FAERS Safety Report 24991646 (Version 1)
Quarter: 2025Q1

REPORT INFORMATION
  Report Type: Report from Study
  Country: IN (occurrence: IN)
  Receive Date: 20250220
  Receipt Date: 20250220
  Transmission Date: 20250408
  Serious: Yes (Death, Hospitalization, Other)
  Sender: CIPLA
  Company Number: IN-CIPLA LTD.-2025IN01836

PATIENT

DRUGS (39)
  1. ACYCLOVIR [Suspect]
     Active Substance: ACYCLOVIR
     Indication: Varicella
     Dosage: UNK, TID (22.5 TABLET (10MG/KG - DOSE), 1/4TH TAB FOR 3 TIMES A DAY (100 MG) TDS)
     Route: 048
     Dates: start: 20241120, end: 20250131
  2. ACYCLOVIR [Suspect]
     Active Substance: ACYCLOVIR
     Indication: Prophylaxis
  3. SULFAMETHOXAZOLE\TRIMETHOPRIM [Concomitant]
     Active Substance: SULFAMETHOXAZOLE\TRIMETHOPRIM
     Indication: Product used for unknown indication
     Route: 065
     Dates: start: 20241025, end: 20250203
  4. VORICONAZOLE [Concomitant]
     Active Substance: VORICONAZOLE
     Indication: Product used for unknown indication
     Route: 048
     Dates: start: 20241025, end: 20250203
  5. CLOGEN [Concomitant]
     Indication: Product used for unknown indication
     Route: 065
     Dates: start: 20241025, end: 20250203
  6. LEVOTHYROXINE [Concomitant]
     Active Substance: LEVOTHYROXINE
     Indication: Product used for unknown indication
     Route: 065
     Dates: start: 20241025, end: 20250203
  7. CYTARABINE [Concomitant]
     Active Substance: CYTARABINE
     Indication: Product used for unknown indication
     Route: 065
     Dates: start: 20241207, end: 20250211
  8. CYTARABINE [Concomitant]
     Active Substance: CYTARABINE
     Route: 065
     Dates: start: 20250120
  9. CYTARABINE [Concomitant]
     Active Substance: CYTARABINE
     Route: 065
     Dates: start: 20241209
  10. CYTARABINE [Concomitant]
     Active Substance: CYTARABINE
     Route: 065
     Dates: start: 20241211
  11. CYTARABINE [Concomitant]
     Active Substance: CYTARABINE
     Route: 065
     Dates: start: 20250121
  12. CYTARABINE [Concomitant]
     Active Substance: CYTARABINE
     Route: 065
     Dates: start: 20250123
  13. CYTARABINE [Concomitant]
     Active Substance: CYTARABINE
     Route: 065
     Dates: start: 20250125
  14. AMIKACIN [Concomitant]
     Active Substance: AMIKACIN
     Indication: Product used for unknown indication
     Route: 065
     Dates: start: 20250121, end: 20250124
  15. ZINC [Concomitant]
     Active Substance: ZINC
     Indication: Product used for unknown indication
     Route: 065
     Dates: start: 20250127
  16. ACETAMINOPHEN [Concomitant]
     Active Substance: ACETAMINOPHEN
     Indication: Product used for unknown indication
     Route: 065
     Dates: start: 20250130, end: 20250203
  17. GRANISET [Concomitant]
     Indication: Product used for unknown indication
     Dosage: 0.3 MILLIGRAM, QD (0.04 MG/KG)
     Route: 065
     Dates: start: 20250121, end: 20250127
  18. GRANISET [Concomitant]
     Dosage: 0.3 MILLIGRAM, QD (0.04 MG/KG)
     Route: 065
     Dates: start: 20241207, end: 20250127
  19. GRANISET [Concomitant]
     Dosage: 0.3 MILLIGRAM, QD (0.04 MG/KG)
     Route: 065
     Dates: start: 20241209, end: 20250127
  20. GRANISET [Concomitant]
     Dosage: 0.3 MILLIGRAM, QD (0.04 MG/KG)
     Route: 065
     Dates: start: 20241211, end: 20250127
  21. GRANISET [Concomitant]
     Dosage: 0.3 MILLIGRAM, QD (0.04 MG/KG)
     Route: 065
     Dates: start: 20250121, end: 20250127
  22. GRANISET [Concomitant]
     Dosage: 0.3 MILLIGRAM, QD (0.04 MG/KG)
     Route: 065
     Dates: start: 20250123, end: 20250127
  23. GRANISET [Concomitant]
     Dosage: 0.3 MILLIGRAM, QD (0.04 MG/KG)
     Route: 065
     Dates: start: 20250125, end: 20250127
  24. AZTREONAM [Concomitant]
     Active Substance: AZTREONAM
     Indication: Product used for unknown indication
     Route: 065
  25. HYDROCORT [HYDROCORTISONE] [Concomitant]
     Indication: Premedication
     Dosage: UNK, BID (1 MG/KG)
     Route: 065
  26. HYDROCORT [HYDROCORTISONE] [Concomitant]
     Route: 065
     Dates: start: 20250120
  27. HYDROCORT [HYDROCORTISONE] [Concomitant]
     Route: 065
     Dates: start: 20241209
  28. RIBAVARIN [Concomitant]
     Active Substance: RIBAVIRIN
     Indication: Product used for unknown indication
     Route: 065
  29. TIGECYCLINE [Concomitant]
     Active Substance: TIGECYCLINE
     Indication: Product used for unknown indication
     Route: 065
  30. ETOPOSIDE [Concomitant]
     Active Substance: ETOPOSIDE
     Indication: Acute megakaryocytic leukaemia
     Route: 065
     Dates: start: 20241104
  31. ETOPOSIDE [Concomitant]
     Active Substance: ETOPOSIDE
     Route: 065
     Dates: start: 20241107
  32. MERCAPTOPURINE [Concomitant]
     Active Substance: MERCAPTOPURINE
     Indication: Acute megakaryocytic leukaemia
     Route: 065
     Dates: start: 20241104
  33. PREDNISOLONE [Concomitant]
     Active Substance: PREDNISOLONE
     Indication: Product used for unknown indication
     Route: 065
  34. PROBIOTICS NOS [Concomitant]
     Active Substance: PROBIOTICS NOS
     Indication: Product used for unknown indication
     Route: 065
  35. PANTOPRAZOLE [Concomitant]
     Active Substance: PANTOPRAZOLE
     Indication: Product used for unknown indication
     Dosage: UNK, QD (ONCE A DAY, BEFORE MEALS)
     Route: 065
  36. METHYLCELLULOSES [Concomitant]
     Active Substance: METHYLCELLULOSES
     Indication: Product used for unknown indication
     Dosage: UNK, QID (2 DROPS IN EACH EYE FOUR TIMES A DAY)
     Route: 031
  37. PEGFILGRASTIM [Concomitant]
     Active Substance: PEGFILGRASTIM
     Indication: Product used for unknown indication
     Route: 058
  38. METHOTREXATE [Concomitant]
     Active Substance: METHOTREXATE
     Indication: Product used for unknown indication
     Route: 065
     Dates: start: 20250120
  39. METHOTREXATE [Concomitant]
     Active Substance: METHOTREXATE
     Route: 065
     Dates: start: 20241209

REACTIONS (6)
  - Septic shock [Fatal]
  - Cardiac arrest [Fatal]
  - Febrile neutropenia [Fatal]
  - Acute respiratory distress syndrome [Fatal]
  - Klebsiella infection [Unknown]
  - Respiratory syncytial virus infection [Unknown]
